FAERS Safety Report 9192218 (Version 3)
Quarter: 2013Q3

REPORT INFORMATION
  Report Type: Report from Study
  Country: BR (occurrence: BR)
  Receive Date: 20130327
  Receipt Date: 20130821
  Transmission Date: 20140515
  Serious: Yes (Hospitalization, Other)
  Sender: FDA-Public Use
  Company Number: PHHY2013BR029425

PATIENT
  Age: 97 Year
  Sex: Female
  Weight: 70 kg

DRUGS (4)
  1. APRESOLIN [Suspect]
     Indication: HYPERTENSION
     Dosage: 75 MG, A DAY
     Route: 048
  2. DIOVAN [Suspect]
     Indication: HYPERTENSION
     Dosage: 240 MG, A DAY
     Route: 048
  3. DIOVAN [Suspect]
     Dosage: 320 MG, A DAY
     Route: 048
  4. ALDOMET [Concomitant]
     Indication: HYPERTENSION
     Dosage: 25 MG, UNK
     Route: 048

REACTIONS (5)
  - Gastrointestinal infection [Recovered/Resolved]
  - Sepsis [Recovered/Resolved]
  - Hypotension [Recovered/Resolved]
  - Hypertension [Recovered/Resolved]
  - Blood pressure inadequately controlled [Unknown]
